FAERS Safety Report 4538752-2 (Version None)
Quarter: 2005Q1

REPORT INFORMATION
  Report Type: 
  Country: None (occurrence: None)
  Receive Date: 20041223
  Receipt Date: 20040922
  Transmission Date: 20050727
  Serious: No
  Sender: FDA-Public Use
  Company Number: US-JNJFOC-20040908029

PATIENT
  Age: 35 Year
  Sex: Female
  Weight: 63.5036 kg

DRUGS (3)
  1. ORTHO EVRA [Suspect]
     Indication: CONTRACEPTION
     Dosage: 1 DOSE(S), 3 IN 4 WEEK, TRANSDERMAL
     Route: 062
     Dates: start: 20030901
  2. MULTIVITAMIN WITH IRON (MULTIVITAMINS AND IRON) [Concomitant]
  3. SINUS MEDICINE (TYLENOL SINUS MEDICATION) [Concomitant]

REACTIONS (2)
  - RASH ERYTHEMATOUS [None]
  - SINUS CONGESTION [None]
